FAERS Safety Report 6647579-7 (Version None)
Quarter: 2010Q1

REPORT INFORMATION
  Report Type: 
  Country: None (occurrence: None)
  Receive Date: 20100323
  Receipt Date: 20100323
  Transmission Date: 20100710
  Serious: Yes (Hospitalization)
  Sender: FDA-Public Use
  Company Number: None

PATIENT
  Age: 92 Year
  Sex: Male
  Weight: 43.05 kg

DRUGS (2)
  1. FENTANYL CITRATE [Suspect]
     Dosage: 50 MCG OTHER IV; 1 MG OTHER IV
     Route: 042
     Dates: start: 20090529, end: 20090529
  2. FENTANYL CITRATE [Suspect]
     Dosage: 50 MCG OTHER IV; 1 MG OTHER IV
     Route: 042
     Dates: start: 20090529, end: 20090529

REACTIONS (4)
  - CONFUSIONAL STATE [None]
  - NAUSEA [None]
  - SEDATION [None]
  - VOMITING [None]
